FAERS Safety Report 23843204 (Version 1)
Quarter: 2024Q2

REPORT INFORMATION
  Report Type: Report from Study
  Country: US (occurrence: US)
  Receive Date: 20240510
  Receipt Date: 20240510
  Transmission Date: 20240716
  Serious: No
  Sender: FDA-Public Use
  Company Number: US-AstraZeneca-CH-00619324A

PATIENT
  Sex: Female

DRUGS (1)
  1. ULTOMIRIS [Suspect]
     Active Substance: RAVULIZUMAB-CWVZ
     Indication: Atypical haemolytic uraemic syndrome
     Dosage: UNK
     Route: 065

REACTIONS (9)
  - Product dose omission in error [Recovering/Resolving]
  - Insomnia [Unknown]
  - Protein total increased [Recovering/Resolving]
  - Blood calcium increased [Recovering/Resolving]
  - Loose body in joint [Unknown]
  - Blood pressure increased [Recovering/Resolving]
  - Blood creatinine increased [Unknown]
  - Fall [Recovering/Resolving]
  - Ligament sprain [Recovering/Resolving]
